FAERS Safety Report 19486336 (Version 2)
Quarter: 2021Q3

REPORT INFORMATION
  Report Type: Other
  Country: PT (occurrence: PT)
  Receive Date: 20210702
  Receipt Date: 20210821
  Transmission Date: 20211014
  Serious: Yes (Hospitalization, Other)
  Sender: FDA-Public Use
  Company Number: PT-ACCORD-230122

PATIENT
  Age: 48 Year
  Sex: Male

DRUGS (6)
  1. PRAMIPEXOLE/PRAMIPEXOLE DIHYDROCHLORIDE [Interacting]
     Active Substance: PRAMIPEXOLE DIHYDROCHLORIDE
     Indication: PARKINSON^S DISEASE
     Dosage: 1.02 MILLIGRAM
  2. LEVODOPA [Interacting]
     Active Substance: LEVODOPA
     Indication: PARKINSON^S DISEASE
     Dosage: 150 MG/DAY
  3. VENLAFAXINE/VENLAFAXINE HYDROCHLORIDE [Interacting]
     Active Substance: VENLAFAXINE HYDROCHLORIDE
     Indication: MAJOR DEPRESSION
     Dosage: 75 MILLIGRAM
  4. SERTRALINE [Suspect]
     Active Substance: SERTRALINE HYDROCHLORIDE
     Indication: PRODUCT USED FOR UNKNOWN INDICATION
     Dosage: 100 MG/DAY
  5. RASAGILINE/RASAGILINE MESYLATE [Interacting]
     Active Substance: RASAGILINE MESYLATE
     Indication: PARKINSON^S DISEASE
     Route: 065
  6. MIRTAZAPINE. [Interacting]
     Active Substance: MIRTAZAPINE
     Indication: MAJOR DEPRESSION
     Dosage: 15 MILLIGRAM

REACTIONS (5)
  - Dyskinesia [Recovered/Resolved]
  - Potentiating drug interaction [Unknown]
  - Medication error [Unknown]
  - Serotonin syndrome [Recovered/Resolved]
  - Accidental overdose [Unknown]
